FAERS Safety Report 8406045-9 (Version None)
Quarter: 2012Q2

REPORT INFORMATION
  Report Type: 
  Country: None (occurrence: None)
  Receive Date: 20120604
  Receipt Date: 20120525
  Transmission Date: 20120825
  Serious: Yes (Other)
  Sender: FDA-Public Use
  Company Number: US-JNJFOC-20111106547

PATIENT
  Sex: Female

DRUGS (3)
  1. LEVAQUIN [Suspect]
     Indication: BRONCHITIS
     Route: 048
     Dates: start: 20070101
  2. LEVAQUIN [Suspect]
     Indication: PNEUMONIA
     Route: 048
     Dates: start: 20070101
  3. ARIMIDEX [Concomitant]
     Indication: NEOPLASM PROPHYLAXIS
     Route: 065

REACTIONS (2)
  - TENDINOUS CONTRACTURE [None]
  - TENDON RUPTURE [None]
